FAERS Safety Report 8499521-4 (Version None)
Quarter: 2012Q2

REPORT INFORMATION
  Report Type: 
  Country: None (occurrence: None)
  Receive Date: 20120629
  Receipt Date: 20120618
  Transmission Date: 20120825
  Serious: Yes (Other)
  Sender: FDA-Public Use
  Company Number: GB-GDP-12414135

PATIENT
  Age: 71 Year
  Sex: Female
  Weight: 66.1 kg

DRUGS (16)
  1. ACITRETIN [Concomitant]
  2. SERTRALINE HYDROCHLORIDE [Concomitant]
  3. FOLIC ACID [Concomitant]
  4. TIOTROPIUM BROMIDE [Concomitant]
  5. CARBOCISTEINE [Concomitant]
  6. ASPIRIN /01428701/ [Concomitant]
  7. AMOXICILLIN [Concomitant]
  8. FENTANYL [Concomitant]
  9. ALPHOSYL /00325301/ [Concomitant]
  10. PREDNISOLONE [Concomitant]
  11. SIMVASTATIN [Concomitant]
  12. AVISCON ADVANCE [Concomitant]
  13. VENTOLIN [Concomitant]
  14. DOXYCYCLINE [Suspect]
     Indication: PRODUCT USED FOR UNKNOWN INDICATION
  15. ALBUTEROL SULATE [Concomitant]
  16. SALMETEROL [Concomitant]

REACTIONS (1)
  - VOMITING [None]
